FAERS Safety Report 7749138-1 (Version None)
Quarter: 2011Q3

REPORT INFORMATION
  Report Type: 
  Country: None (occurrence: None)
  Receive Date: 20110914
  Receipt Date: 20110909
  Transmission Date: 20111222
  Serious: No
  Sender: FDA-Public Use
  Company Number: US-PFIZER INC-2011153124

PATIENT
  Sex: Female
  Weight: 54.422 kg

DRUGS (2)
  1. CHANTIX [Suspect]
     Indication: SMOKING CESSATION THERAPY
     Dosage: UNK
     Dates: start: 20070101
  2. CHANTIX [Suspect]
     Dosage: 1 MG, UNK
     Dates: start: 20090101

REACTIONS (4)
  - WITHDRAWAL SYNDROME [None]
  - VOMITING [None]
  - GINGIVAL DISORDER [None]
  - TONGUE DISORDER [None]
